FAERS Safety Report 21418424 (Version 1)
Quarter: 2022Q4

REPORT INFORMATION
  Report Type: Spontaneous
  Country: US (occurrence: US)
  Receive Date: 20221006
  Receipt Date: 20221006
  Transmission Date: 20230113
  Serious: No
  Sender: FDA-Public Use
  Company Number: US-JNJFOC-20220949772

PATIENT
  Sex: Male
  Weight: 85.352 kg

DRUGS (1)
  1. HALDOL [Suspect]
     Active Substance: HALOPERIDOL
     Indication: Product used for unknown indication
     Route: 065

REACTIONS (3)
  - Tremor [Unknown]
  - Musculoskeletal discomfort [Unknown]
  - Muscle spasms [Unknown]
